FAERS Safety Report 10446909 (Version 1)
Quarter: 2014Q3

REPORT INFORMATION
  Report Type: Spontaneous
  Country: US (occurrence: None)
  Receive Date: 20140909
  Receipt Date: 20140909
  Transmission Date: 20150326
  Serious: Yes (Other)
  Sender: FDA-Public Use
  Company Number: US-H14001-14-00508

PATIENT
  Age: 65 Year
  Sex: Female

DRUGS (1)
  1. FENTANYL. [Suspect]
     Active Substance: FENTANYL
     Indication: PRODUCT USED FOR UNKNOWN INDICATION

REACTIONS (7)
  - Nausea [None]
  - Pain [None]
  - Vomiting [None]
  - Nervous system disorder [None]
  - Dysphagia [None]
  - Abdominal discomfort [None]
  - Dyspnoea [None]
